FAERS Safety Report 10178041 (Version 1)
Quarter: 2014Q2

REPORT INFORMATION
  Report Type: Spontaneous
  Country: IT (occurrence: IT)
  Receive Date: 20140518
  Receipt Date: 20140518
  Transmission Date: 20141212
  Serious: Yes (Other)
  Sender: FDA-Public Use
  Company Number: IT-009507513-1405ITA005905

PATIENT
  Age: 66 Year
  Sex: Female

DRUGS (5)
  1. REBETOL [Suspect]
     Indication: HEPATITIS C
     Dosage: 1000 MG DAILY
     Route: 048
     Dates: start: 20130911
  2. REBETOL [Suspect]
     Dosage: 400 MG, DAILY
     Route: 048
     Dates: start: 20140131
  3. VICTRELIS [Suspect]
     Indication: HEPATITIS C
     Dosage: 2400 MG DAILY
     Route: 048
     Dates: start: 20131011
  4. PEGASYS [Suspect]
     Indication: HEPATITIS C
     Dosage: 180 MICROGRAM, QW
     Route: 058
     Dates: start: 20130911
  5. PEGASYS [Suspect]
     Dosage: 135 MICROGRAM, QW
     Route: 058
     Dates: start: 20140131

REACTIONS (2)
  - Neutropenia [Recovering/Resolving]
  - Anaemia [Recovering/Resolving]
